FAERS Safety Report 12100835 (Version 5)
Quarter: 2016Q2

REPORT INFORMATION
  Report Type: Spontaneous
  Country: CN (occurrence: CN)
  Receive Date: 20160222
  Receipt Date: 20160407
  Transmission Date: 20160815
  Serious: Yes (Other)
  Sender: FDA-Public Use
  Company Number: PHHY2016CN022273

PATIENT
  Age: 61 Year
  Sex: Male

DRUGS (1)
  1. DICLOFENAC [Suspect]
     Active Substance: DICLOFENAC
     Indication: OSTEOARTHRITIS
     Dosage: 1 DF, QD
     Route: 065

REACTIONS (10)
  - Upper gastrointestinal haemorrhage [Recovered/Resolved]
  - Azotaemia [Recovered/Resolved]
  - Abdominal tenderness [Unknown]
  - Gastric ulcer [Recovered/Resolved]
  - Drug abuse [Unknown]
  - Gastrointestinal disorder [Recovered/Resolved]
  - Helicobacter infection [Recovered/Resolved]
  - Melaena [Recovered/Resolved]
  - Abdominal pain upper [Not Recovered/Not Resolved]
  - Normochromic normocytic anaemia [Recovered/Resolved]
